FAERS Safety Report 6694037-X (Version None)
Quarter: 2010Q2

REPORT INFORMATION
  Report Type: 
  Country: None (occurrence: None)
  Receive Date: 20100423
  Receipt Date: 20100323
  Transmission Date: 20101027
  Serious: No
  Sender: FDA-Public Use
  Company Number: US-BAYER-201013562BCC

PATIENT
  Age: 66 Year
  Sex: Male
  Weight: 86 kg

DRUGS (6)
  1. ALEVE (CAPLET) [Suspect]
     Indication: DRUG USE FOR UNKNOWN INDICATION
     Dosage: TOTAL DAILY DOSE: 880 MG  UNIT DOSE: 220 MG
     Route: 048
     Dates: start: 20070101
  2. ASPIRIN [Concomitant]
     Route: 065
  3. GLUCOSAMINE [Concomitant]
     Route: 065
  4. FISH OIL [Concomitant]
     Route: 065
  5. UNKNOWN BLOOD SUGAR MEDICATION [Concomitant]
     Route: 065
  6. 3 UNKNOWN HEART MEDICATIONS [Concomitant]
     Route: 065

REACTIONS (1)
  - PHOTOPSIA [None]
